FAERS Safety Report 5160342-1 (Version None)
Quarter: 2006Q4

REPORT INFORMATION
  Report Type: 
  Country: None (occurrence: None)
  Receive Date: 20061121
  Receipt Date: 20061107
  Transmission Date: 20070319
  Serious: Yes (Hospitalization)
  Sender: FDA-Public Use
  Company Number: 2006BI016258

PATIENT
  Age: 26 Year
  Sex: Female

DRUGS (5)
  1. NATALIZUMAB [Suspect]
     Indication: MULTIPLE SCLEROSIS
     Dosage: 300 MG; QM; IV
     Route: 042
     Dates: start: 20061030
  2. ORAL CONTRACEPTIVE NOS [Concomitant]
  3. CALCIUM SUPPLEMENT [Concomitant]
  4. POTASSIUM SUPPLEMENT [Concomitant]
  5. BACLOFEN [Concomitant]

REACTIONS (9)
  - HEART RATE INCREASED [None]
  - HEPATIC FAILURE [None]
  - HEPATITIS [None]
  - HEPATOCELLULAR DAMAGE [None]
  - INFREQUENT BOWEL MOVEMENTS [None]
  - INFUSION RELATED REACTION [None]
  - INTERNATIONAL NORMALISED RATIO INCREASED [None]
  - NAUSEA [None]
  - WHITE BLOOD CELL COUNT DECREASED [None]
